FAERS Safety Report 5763615-4 (Version None)
Quarter: 2008Q2

REPORT INFORMATION
  Report Type: 
  Country: None (occurrence: None)
  Receive Date: 20080610
  Receipt Date: 20080603
  Transmission Date: 20081010
  Serious: Yes (Hospitalization)
  Sender: FDA-Public Use
  Company Number: GB-RANBAXY-2008RR-15698

PATIENT

DRUGS (8)
  1. CLARITHROMYCIN [Suspect]
     Indication: MYCOBACTERIUM AVIUM COMPLEX INFECTION
     Dosage: UNK
     Dates: start: 20030501
  2. CLOPIDOGREL [Suspect]
     Indication: PROPHYLAXIS
     Dosage: 75 MG, QD
  3. CLOPIDOGREL [Suspect]
     Dosage: 600 MG, UNK
  4. CLOPIDOGREL [Suspect]
     Dosage: 150 MG, QD
  5. RIFAMPICIN [Suspect]
     Indication: MYCOBACTERIUM AVIUM COMPLEX INFECTION
     Dosage: 75 MG, UNK
     Dates: start: 20030501
  6. ETHAMBUTOL HYDROCHLORIDE [Suspect]
     Indication: MYCOBACTERIUM AVIUM COMPLEX INFECTION
     Dosage: 150 MG, UNK
     Dates: start: 20030501
  7. ABCIXIMAB [Concomitant]
  8. ASPIRIN [Concomitant]

REACTIONS (2)
  - DRUG INTERACTION [None]
  - THROMBOSIS [None]
